FAERS Safety Report 9636696 (Version 2)
Quarter: 2013Q4

REPORT INFORMATION
  Report Type: Report from Study
  Country: FR (occurrence: FR)
  Receive Date: 20131021
  Receipt Date: 20131127
  Transmission Date: 20140711
  Serious: Yes (Death, Disabling)
  Sender: FDA-Public Use
  Company Number: FR-ROCHE-1292079

PATIENT
  Age: 57 Year
  Sex: Male

DRUGS (5)
  1. ZELBORAF [Suspect]
     Indication: NEOPLASM MALIGNANT
     Route: 065
  2. ZELBORAF [Suspect]
     Route: 048
     Dates: start: 201302
  3. KEPPRA [Concomitant]
  4. AMLOR [Concomitant]
  5. CORTANCYL [Concomitant]

REACTIONS (2)
  - Disease progression [Fatal]
  - Rash [Unknown]
